FAERS Safety Report 8158614-1 (Version None)
Quarter: 2012Q1

REPORT INFORMATION
  Report Type: 
  Country: None (occurrence: None)
  Receive Date: 20120223
  Receipt Date: 20120213
  Transmission Date: 20120608
  Serious: Yes (Hospitalization, Other)
  Sender: FDA-Public Use
  Company Number: CH-JNJFOC-20110100693

PATIENT
  Age: 16 Year
  Sex: Male

DRUGS (3)
  1. INVEGA [Suspect]
     Indication: PRODUCT USED FOR UNKNOWN INDICATION
     Route: 048
     Dates: start: 20100101, end: 20101201
  2. TRIMIPRAMINE MALEATE [Suspect]
     Indication: ANTIDEPRESSANT THERAPY
     Route: 065
  3. CONCERTA [Suspect]
     Indication: ATTENTION DEFICIT/HYPERACTIVITY DISORDER
     Route: 048
     Dates: start: 20070101

REACTIONS (3)
  - WEIGHT INCREASED [None]
  - ABNORMAL BEHAVIOUR [None]
  - SECONDARY HYPOGONADISM [None]
